FAERS Safety Report 8927852 (Version 1)
Quarter: 2012Q4

REPORT INFORMATION
  Report Type: 
  Country: US (occurrence: US)
  Receive Date: 20121127
  Receipt Date: 20121127
  Transmission Date: 20130627
  Serious: Yes (Other)
  Sender: FDA-Public Use
  Company Number: US-MYLANLABS-2012S1023675

PATIENT
  Age: 43 Year
  Sex: Female

DRUGS (2)
  1. EXCEDRIN [Suspect]
     Indication: HEADACHE
     Dosage: Average dose of 1g 4 times daily
     Route: 065
  2. ACARBOSE [Interacting]
     Indication: DIABETES MELLITUS
     Route: 065

REACTIONS (3)
  - Hepatic failure [Recovering/Resolving]
  - Potentiating drug interaction [Recovered/Resolved]
  - Hepatotoxicity [None]
